FAERS Safety Report 5353354-6 (Version None)
Quarter: 2007Q2

REPORT INFORMATION
  Report Type: 
  Country: None (occurrence: None)
  Receive Date: 20070518
  Receipt Date: 20070320
  Transmission Date: 20071010
  Serious: No
  Sender: FDA-Public Use
  Company Number: TPA2007A00653

PATIENT
  Age: 54 Year
  Sex: Female
  Weight: 63.5036 kg

DRUGS (7)
  1. ROZEREM [Suspect]
     Indication: INSOMNIA
     Dosage: SEE IMAGE
     Route: 048
     Dates: start: 20060901
  2. ROZEREM [Suspect]
     Indication: INSOMNIA
     Dosage: SEE IMAGE
     Route: 048
     Dates: start: 20061201
  3. NEXIUM [Concomitant]
  4. KLONOPIN [Concomitant]
  5. LOTREL [Concomitant]
  6. COREG [Concomitant]
  7. ASPIRIN [Concomitant]

REACTIONS (2)
  - ALOPECIA [None]
  - PRESCRIBED OVERDOSE [None]
